FAERS Safety Report 4984117-9 (Version None)
Quarter: 2006Q1

REPORT INFORMATION
  Report Type: 
  Country: None (occurrence: None)
  Receive Date: 20060303
  Receipt Date: 20051121
  Transmission Date: 20060701
  Serious: Yes (Other)
  Sender: FDA-Public Use
  Company Number: HQWYE718328NOV05

PATIENT
  Age: 75 Year
  Sex: Female
  Weight: 90.8 kg

DRUGS (2)
  1. ALAVERT D-12 (LORATADINE/PSEUDOEPHERINE SULFATE, TABLET, EXTENDED RELE [Suspect]
     Indication: HYPERSENSITIVITY
     Dosage: 1 TABLET AS NEEDED, ORAL
     Route: 048
     Dates: start: 20051101
  2. HYDRALAZINE HCL [Concomitant]

REACTIONS (1)
  - INSOMNIA [None]
